FAERS Safety Report 4275027-3 (Version None)
Quarter: 2004Q1

REPORT INFORMATION
  Report Type: 
  Country: None (occurrence: None)
  Receive Date: 20040116
  Receipt Date: 20040106
  Transmission Date: 20041129
  Serious: Yes (Life-Threatening, Hospitalization)
  Sender: FDA-Public Use
  Company Number: JP-JNJFOC-20031203942

PATIENT
  Age: 2 Year
  Sex: Female
  Weight: 12 kg

DRUGS (13)
  1. REMICADE [Suspect]
     Indication: CROHN'S DISEASE
     Dosage: 60 MG, 1 IN 1 AS NECESSARY, INTRAVENOUS DRIP
     Dates: start: 20031027, end: 20031027
  2. REMICADE [Suspect]
     Indication: CROHN'S DISEASE
     Dosage: 60 MG, 1 IN 1 AS NECESSARY, INTRAVENOUS DRIP
     Dates: start: 20031201, end: 20031201
  3. PREDONINE (PREDNISOLONE) POWDER [Suspect]
     Indication: CROHN'S DISEASE
     Dosage: SEE IMAGE
     Route: 048
     Dates: start: 20030905, end: 20030925
  4. PREDONINE (PREDNISOLONE) POWDER [Suspect]
     Indication: CROHN'S DISEASE
     Dosage: SEE IMAGE
     Route: 048
     Dates: start: 20030926, end: 20031009
  5. PREDONINE (PREDNISOLONE) POWDER [Suspect]
     Indication: CROHN'S DISEASE
     Dosage: SEE IMAGE
     Route: 048
     Dates: start: 20031010, end: 20031016
  6. PREDONINE (PREDNISOLONE) POWDER [Suspect]
     Indication: CROHN'S DISEASE
     Dosage: SEE IMAGE
     Route: 048
     Dates: start: 20031017, end: 20031029
  7. PREDONINE (PREDNISOLONE) POWDER [Suspect]
     Indication: CROHN'S DISEASE
     Dosage: SEE IMAGE
     Route: 048
     Dates: start: 20031030
  8. LEUKERIN (MERCAPTOPURINE) POWDER [Suspect]
     Indication: CROHN'S DISEASE
     Dosage: 10 MG, IN 1 DAY, ORAL
     Route: 048
     Dates: start: 20030922
  9. SULFASALAZINE [Concomitant]
  10. GASTER (FAMOTIDINE) POWDER [Concomitant]
  11. SELBEX (TEPRENONE) GRANULES [Concomitant]
  12. MIYA-BM (ALL OTHER THERAPEUTIC PRODUCTS) GRANULES [Concomitant]
  13. ALFAROL (ALFACALCIDOL) [Concomitant]

REACTIONS (5)
  - BLISTER [None]
  - DEPRESSED LEVEL OF CONSCIOUSNESS [None]
  - DRUG INTERACTION [None]
  - HERPES ZOSTER [None]
  - VARICELLA [None]
